FAERS Safety Report 14384661 (Version 2)
Quarter: 2018Q1

REPORT INFORMATION
  Report Type: Spontaneous
  Country: JP (occurrence: JP)
  Receive Date: 20180115
  Receipt Date: 20180118
  Transmission Date: 20180509
  Serious: Yes (Other)
  Sender: FDA-Public Use
  Company Number: JP-BRISTOL-MYERS SQUIBB COMPANY-BMS-2018-002025

PATIENT
  Sex: Male

DRUGS (1)
  1. ELIQUIS [Suspect]
     Active Substance: APIXABAN
     Indication: CEREBROVASCULAR ACCIDENT PROPHYLAXIS
     Dosage: 2.5 MG, BID
     Route: 048
     Dates: end: 201801

REACTIONS (6)
  - Carotid artery occlusion [Unknown]
  - Renal failure [Unknown]
  - Nephrosclerosis [Unknown]
  - Transient ischaemic attack [Unknown]
  - Brain stem haemorrhage [Unknown]
  - Heart rate increased [Unknown]
